FAERS Safety Report 8583759-1 (Version None)
Quarter: 2012Q3

REPORT INFORMATION
  Report Type: 
  Country: None (occurrence: None)
  Receive Date: 20120810
  Receipt Date: 20120725
  Transmission Date: 20120928
  Serious: Yes (Other)
  Sender: FDA-Public Use
  Company Number: BE-MERCK-1208BEL000322

PATIENT

DRUGS (1)
  1. TEMOZOLOMIDE [Suspect]
     Dosage: 75 MG/M2, QD, X2 DAY
     Dates: start: 20060201, end: 20070201

REACTIONS (1)
  - NON-HODGKIN'S LYMPHOMA [None]
